FAERS Safety Report 5834862-8 (Version None)
Quarter: 2008Q3

REPORT INFORMATION
  Report Type: 
  Country: None (occurrence: None)
  Receive Date: 20080805
  Receipt Date: 20080805
  Transmission Date: 20090109
  Serious: Yes (Hospitalization)
  Sender: FDA-Public Use
  Company Number: None

PATIENT
  Age: 62 Year

DRUGS (1)
  1. GENTAMICIN SULFATE IN SODIUM CHLORIDE 0.9% [Suspect]
     Dosage: 80 MG TID IV
     Route: 042
     Dates: start: 20080330, end: 20080404

REACTIONS (6)
  - CENTRAL NERVOUS SYSTEM LESION [None]
  - CEREBROVASCULAR ACCIDENT [None]
  - NYSTAGMUS [None]
  - OSCILLOPSIA [None]
  - OTOTOXICITY [None]
  - VESTIBULAR DISORDER [None]
